FAERS Safety Report 15569049 (Version 2)
Quarter: 2018Q4

REPORT INFORMATION
  Report Type: Report from Study
  Country: DE (occurrence: DE)
  Receive Date: 20181031
  Receipt Date: 20181108
  Transmission Date: 20190205
  Serious: Yes (Other)
  Sender: FDA-Public Use
  Company Number: DE-ROCHE-2207765

PATIENT
  Sex: Male
  Weight: 150 kg

DRUGS (12)
  1. RANIBIZUMAB. [Suspect]
     Active Substance: RANIBIZUMAB
     Dosage: 0.5 MG (PRE-FILLED SYRINGE, 1X)
     Route: 031
     Dates: start: 20170130
  2. RANIBIZUMAB. [Suspect]
     Active Substance: RANIBIZUMAB
     Dosage: 0.5 MG (PRE-FILLED SYRINGE, 1X)
     Route: 031
     Dates: start: 20171030
  3. RANIBIZUMAB. [Suspect]
     Active Substance: RANIBIZUMAB
     Dosage: 0.5 MG (PRE-FILLED SYRINGE, 1X)
     Route: 031
     Dates: start: 20160606
  4. RANIBIZUMAB. [Suspect]
     Active Substance: RANIBIZUMAB
     Indication: VISUAL IMPAIRMENT
     Dosage: 0.5 MG (PRE-FILLED SYRINGE, 1X)
     Route: 031
     Dates: start: 20160815
  5. RANIBIZUMAB. [Suspect]
     Active Substance: RANIBIZUMAB
     Dosage: 0.5 MG (PRE-FILLED SYRINGE, 1X)
     Route: 031
     Dates: start: 20170918
  6. RANIBIZUMAB. [Suspect]
     Active Substance: RANIBIZUMAB
     Dosage: 0.5 MG (PRE-FILLED SYRINGE, 1X)
     Route: 031
     Dates: start: 20180212
  7. RANIBIZUMAB. [Suspect]
     Active Substance: RANIBIZUMAB
     Dosage: 0.5 MG (PRE-FILLED SYRINGE, 1X)
     Route: 031
     Dates: start: 20161107
  8. RANIBIZUMAB. [Suspect]
     Active Substance: RANIBIZUMAB
     Dosage: 0.5 MG (PRE-FILLED SYRINGE, 1X)
     Route: 031
     Dates: start: 20170508
  9. RANIBIZUMAB. [Suspect]
     Active Substance: RANIBIZUMAB
     Dosage: 0.5 MG (PRE-FILLED SYRINGE, 1X)
     Route: 031
     Dates: start: 20171211
  10. RANIBIZUMAB. [Suspect]
     Active Substance: RANIBIZUMAB
     Dosage: 0.5 MG (PRE-FILLED SYRINGE, 1X)
     Route: 031
     Dates: start: 20180416, end: 20180416
  11. RANIBIZUMAB. [Suspect]
     Active Substance: RANIBIZUMAB
     Indication: DIABETIC RETINAL OEDEMA
     Dosage: 0.5 MG (PRE-FILLED SYRINGE, 1X)
     Route: 031
     Dates: start: 20160606
  12. RANIBIZUMAB. [Suspect]
     Active Substance: RANIBIZUMAB
     Dosage: 0.5 MG (PRE-FILLED SYRINGE, 1X)
     Route: 031
     Dates: start: 20170807, end: 20170807

REACTIONS (5)
  - Retinal oedema [Unknown]
  - Cystoid macular oedema [Not Recovered/Not Resolved]
  - Subretinal fluid [Recovering/Resolving]
  - Concomitant disease aggravated [Not Recovered/Not Resolved]
  - Retinal thickening [Not Recovered/Not Resolved]

NARRATIVE: CASE EVENT DATE: 20170807
